FAERS Safety Report 8929023 (Version 2)
Quarter: 2013Q1

REPORT INFORMATION
  Report Type: Spontaneous
  Country: US (occurrence: US)
  Receive Date: 20121128
  Receipt Date: 20130118
  Transmission Date: 20140127
  Serious: Yes (Death)
  Sender: FDA-Public Use
  Company Number: PHEH2012US023240

PATIENT
  Sex: Female

DRUGS (4)
  1. EXELON PATCH [Suspect]
     Dosage: 9.5 MG, UNK
     Route: 062
  2. NAMENDA [Concomitant]
     Indication: DEMENTIA ALZHEIMER^S TYPE
  3. CALCIUM [Concomitant]
  4. MULTIVITAMINS [Concomitant]

REACTIONS (1)
  - Death [Fatal]
